FAERS Safety Report 7004013-5 (Version None)
Quarter: 2010Q3

REPORT INFORMATION
  Report Type: 
  Country: None (occurrence: None)
  Receive Date: 20100917
  Receipt Date: 20100903
  Transmission Date: 20110219
  Serious: Yes (Life-Threatening, Other)
  Sender: FDA-Public Use
  Company Number: 1-23187265

PATIENT
  Age: 49 Year
  Sex: Female

DRUGS (23)
  1. FENTANYL-75 [Suspect]
     Indication: FIBROMYALGIA
     Dosage: 75 MCG/HR Q 72 HRS, TRANSDERMAL
     Route: 062
     Dates: start: 20090101, end: 20100602
  2. FENTANYL-75 [Suspect]
     Indication: SCLERODERMA
     Dosage: 75 MCG/HR Q 72 HRS, TRANSDERMAL
     Route: 062
     Dates: start: 20090101, end: 20100602
  3. FENTANYL [Suspect]
     Indication: FIBROMYALGIA
     Dosage: 50 MCG/HR, TRANSDERMAL
     Route: 062
     Dates: start: 20100618
  4. FENTANYL [Suspect]
     Indication: SCLERODERMA
     Dosage: 50 MCG/HR, TRANSDERMAL
     Route: 062
     Dates: start: 20100618
  5. CYMBALTA [Concomitant]
  6. MULTI-VITAMIN [Concomitant]
  7. SUPER B COMPLEX [Concomitant]
  8. OMEPRAZOLE [Concomitant]
  9. FISH OIL [Concomitant]
  10. FOLIC ACID [Concomitant]
  11. METHOTREXATE [Concomitant]
  12. VICODIN [Concomitant]
  13. ESTER C [Concomitant]
  14. CALCIUM WITH VITAMIN D [Concomitant]
  15. ACIDOPHILUS [Concomitant]
  16. LORAZEPAM [Concomitant]
  17. OXYBUTYNIN [Concomitant]
  18. FOLIC ACID [Concomitant]
  19. ESTRADIOL [Concomitant]
  20. MILK OF MAGNESIA TAB [Concomitant]
  21. MIRALAX [Concomitant]
  22. COLCHICINE [Concomitant]
  23. FENOSIDES [Concomitant]

REACTIONS (22)
  - ABDOMINAL PAIN [None]
  - ANXIETY [None]
  - CONDITION AGGRAVATED [None]
  - CONSTIPATION [None]
  - DRUG DOSE OMISSION [None]
  - DRUG WITHDRAWAL SYNDROME [None]
  - EARLY SATIETY [None]
  - FATIGUE [None]
  - FEELING JITTERY [None]
  - HAEMOGLOBIN DECREASED [None]
  - HYPOTENSION [None]
  - INSOMNIA [None]
  - INTESTINAL HAEMORRHAGE [None]
  - LOSS OF CONSCIOUSNESS [None]
  - NAUSEA [None]
  - PAIN [None]
  - POST PROCEDURAL HAEMORRHAGE [None]
  - RESTLESSNESS [None]
  - SELF-MEDICATION [None]
  - SUTURE RELATED COMPLICATION [None]
  - TACHYCARDIA [None]
  - WEIGHT DECREASED [None]
